FAERS Safety Report 5347419-2 (Version None)
Quarter: 2007Q2

REPORT INFORMATION
  Report Type: 
  Country: None (occurrence: None)
  Receive Date: 20070507
  Receipt Date: 20060923
  Transmission Date: 20071010
  Serious: Yes (Hospitalization, Disabling)
  Sender: FDA-Public Use
  Company Number: 2376

PATIENT
  Age: 39 Year
  Sex: Male
  Weight: 63.5036 kg

DRUGS (4)
  1. AVINZA [Suspect]
     Indication: PAIN
     Dosage: 120 MG DAILY PO
     Route: 048
     Dates: start: 20060808, end: 20060808
  2. AVINZA [Suspect]
     Indication: THERMAL BURN
     Dosage: 120 MG DAILY PO
     Route: 048
     Dates: start: 20060808, end: 20060808
  3. ALPRAZOLAM [Concomitant]
  4. ACETAMINOPHEN AND OXYCODONE HCL [Concomitant]

REACTIONS (4)
  - HYPERTENSION [None]
  - OVERDOSE [None]
  - PARAESTHESIA [None]
  - SYNCOPE [None]
